FAERS Safety Report 4370033-2 (Version None)
Quarter: 2004Q2

REPORT INFORMATION
  Report Type: 
  Country: None (occurrence: None)
  Receive Date: 20040527
  Receipt Date: 20040517
  Transmission Date: 20050107
  Serious: Yes (Life-Threatening)
  Sender: FDA-Public Use
  Company Number: 2004UW09490

PATIENT
  Age: 43 Year
  Sex: Male
  Weight: 85.2762 kg

DRUGS (8)
  1. CRESTOR [Suspect]
     Indication: DYSLIPIDAEMIA
     Dosage: 20 MG DAILY PO
     Route: 048
     Dates: start: 20031001
  2. LITHIUM CARBONATE [Suspect]
     Dosage: 1500 MG DAILY
     Dates: end: 20040503
  3. LITHIUM CARBONATE [Suspect]
  4. LIPIDIL [Suspect]
     Indication: DYSLIPIDAEMIA
     Dosage: 200 MG DAILY
     Dates: start: 20020601
  5. HALDOL [Concomitant]
  6. COGENTIN [Concomitant]
  7. ALLOPURINOL [Concomitant]
  8. ALTACE [Concomitant]

REACTIONS (8)
  - BLOOD AMYLASE INCREASED [None]
  - BLOOD CREATININE INCREASED [None]
  - CONFUSIONAL STATE [None]
  - HAEMATOCRIT DECREASED [None]
  - HAEMOGLOBIN DECREASED [None]
  - RED BLOOD CELL COUNT DECREASED [None]
  - THERAPEUTIC AGENT TOXICITY [None]
  - TREMOR [None]
